FAERS Safety Report 8883775 (Version 1)
Quarter: 2012Q4

REPORT INFORMATION
  Report Type: 
  Country: US (occurrence: US)
  Receive Date: 20121102
  Receipt Date: 20121102
  Transmission Date: 20130627
  Serious: No
  Sender: FDA-Public Use
  Company Number: US-ASTRAZENECA-2012SE06933

PATIENT
  Age: 824 Month
  Sex: Female
  Weight: 61.2 kg

DRUGS (5)
  1. CRESTOR [Suspect]
     Route: 048
     Dates: start: 20111104, end: 201111
  2. CRESTOR [Suspect]
     Route: 048
     Dates: start: 20120106
  3. LEVOTHYROXINE [Concomitant]
  4. FLOVENT [Concomitant]
  5. PLAVIX [Concomitant]

REACTIONS (3)
  - Chest discomfort [Unknown]
  - Palpitations [Unknown]
  - Asthenia [Unknown]
